FAERS Safety Report 19247277 (Version 1)
Quarter: 2021Q2

REPORT INFORMATION
  Report Type: Spontaneous
  Country: GB (occurrence: GB)
  Receive Date: 20210512
  Receipt Date: 20210512
  Transmission Date: 20210717
  Serious: Yes (Other)
  Sender: FDA-Public Use
  Company Number: GB-ACCORD-224733

PATIENT
  Age: 67 Year
  Sex: Male
  Weight: 87.7 kg

DRUGS (3)
  1. ASTRAZENECA COVID?19 VACCINE [Concomitant]
     Active Substance: AZD-1222
     Dosage: 1 DOSE
     Route: 030
     Dates: start: 20210212, end: 20210212
  2. RAMIPRIL. [Suspect]
     Active Substance: RAMIPRIL
     Indication: PRODUCT USED FOR UNKNOWN INDICATION
     Dosage: 2.5MG AND 5MG
     Dates: start: 20210408
  3. SALBUTAMOL [Concomitant]
     Active Substance: ALBUTEROL
     Indication: BACK PAIN
     Dosage: ONE OR TWO PUFFS TO BE INHALED UP TO FOUR TIMES A DAY
     Route: 055
     Dates: start: 20210413

REACTIONS (1)
  - Syncope [Recovering/Resolving]

NARRATIVE: CASE EVENT DATE: 20210421
